FAERS Safety Report 14674259 (Version 1)
Quarter: 2018Q1

REPORT INFORMATION
  Report Type: Spontaneous
  Country: US (occurrence: US)
  Receive Date: 20180323
  Receipt Date: 20180323
  Transmission Date: 20180509
  Serious: No
  Sender: FDA-Public Use
  Company Number: US-PFIZER INC-2018120165

PATIENT
  Age: 71 Year
  Sex: Male
  Weight: 88.45 kg

DRUGS (8)
  1. ADVIL LIQUI-GELS [Suspect]
     Active Substance: IBUPROFEN
     Indication: BACK PAIN
     Dosage: 200 MG, 3X/DAY
     Route: 048
     Dates: start: 201711
  2. ADVIL LIQUI-GELS [Suspect]
     Active Substance: IBUPROFEN
     Indication: COUGH
  3. ADVIL [Suspect]
     Active Substance: IBUPROFEN
     Indication: BACK PAIN
     Dosage: 200 MG, 3X/DAY
  4. ADVIL [Suspect]
     Active Substance: IBUPROFEN
     Indication: CHEST INJURY
  5. ADVIL [Suspect]
     Active Substance: IBUPROFEN
     Indication: COUGH
  6. ADVIL LIQUI-GELS [Suspect]
     Active Substance: IBUPROFEN
     Indication: INFLUENZA
  7. ADVIL LIQUI-GELS [Suspect]
     Active Substance: IBUPROFEN
     Indication: CHEST INJURY
  8. ADVIL [Suspect]
     Active Substance: IBUPROFEN
     Indication: INFLUENZA

REACTIONS (2)
  - Blood pressure increased [Unknown]
  - Intentional product use issue [Unknown]

NARRATIVE: CASE EVENT DATE: 201711
